FAERS Safety Report 14568526 (Version 1)
Quarter: 2018Q1

REPORT INFORMATION
  Report Type: Spontaneous
  Country: TR (occurrence: TR)
  Receive Date: 20180223
  Receipt Date: 20180223
  Transmission Date: 20180509
  Serious: Yes (Death, Hospitalization)
  Sender: FDA-Public Use
  Company Number: TR-IMPAX LABORATORIES, INC-2018-IPXL-00519

PATIENT
  Sex: Female

DRUGS (6)
  1. PROPRANOLOL HYDROCHLORIDE IR [Suspect]
     Active Substance: PROPRANOLOL HYDROCHLORIDE
     Indication: PRODUCT USE ISSUE
  2. METFORMIN HYDROCHLORIDE ER [Suspect]
     Active Substance: METFORMIN HYDROCHLORIDE
     Indication: PRODUCT USE ISSUE
  3. METFORMIN HYDROCHLORIDE ER [Suspect]
     Active Substance: METFORMIN HYDROCHLORIDE
     Indication: HYPERINSULINISM
     Dosage: 50 MG/KG, UNK
     Route: 065
  4. PROPRANOLOL HYDROCHLORIDE IR [Suspect]
     Active Substance: PROPRANOLOL HYDROCHLORIDE
     Indication: CARDIAC SEPTAL HYPERTROPHY
     Dosage: UNK
     Route: 065
  5. METFORMIN HYDROCHLORIDE ER [Suspect]
     Active Substance: METFORMIN HYDROCHLORIDE
     Indication: PRODUCT USE IN UNAPPROVED INDICATION
     Dosage: 100 MG/KG, UNK
     Route: 065
  6. PROPRANOLOL HYDROCHLORIDE IR [Suspect]
     Active Substance: PROPRANOLOL HYDROCHLORIDE
     Indication: PRODUCT USE IN UNAPPROVED INDICATION

REACTIONS (6)
  - Endocrine disorder [Unknown]
  - Cardiac failure [Fatal]
  - Product use issue [Unknown]
  - Drug administered to patient of inappropriate age [Unknown]
  - Product use in unapproved indication [Unknown]
  - Pneumonia [Fatal]
